FAERS Safety Report 9897151 (Version 24)
Quarter: 2019Q2

REPORT INFORMATION
  Report Type: Report from Study
  Country: CA (occurrence: CA)
  Receive Date: 20140214
  Receipt Date: 20190527
  Transmission Date: 20190711
  Serious: Yes (Hospitalization, Other)
  Sender: FDA-Public Use
  Company Number: CA-ROCHE-1332106

PATIENT
  Age: 53 Year
  Sex: Female
  Weight: 93 kg

DRUGS (34)
  1. VENLAFAXINE [Suspect]
     Active Substance: VENLAFAXINE HYDROCHLORIDE
     Indication: PRODUCT USED FOR UNKNOWN INDICATION
     Route: 065
     Dates: start: 201402
  2. CYMBALTA [Suspect]
     Active Substance: DULOXETINE HYDROCHLORIDE
     Indication: PRODUCT USED FOR UNKNOWN INDICATION
     Route: 065
  3. GABAPENTIN. [Concomitant]
     Active Substance: GABAPENTIN
  4. ATIVAN [Concomitant]
     Active Substance: LORAZEPAM
  5. BENADRYL [Concomitant]
     Active Substance: DIPHENHYDRAMINE HYDROCHLORIDE
     Indication: PREMEDICATION
     Route: 048
     Dates: start: 20150319
  6. BISOPROLOL [Concomitant]
     Active Substance: BISOPROLOL
  7. ATORVASTATIN [Concomitant]
     Active Substance: ATORVASTATIN
  8. ABILIFY [Concomitant]
     Active Substance: ARIPIPRAZOLE
  9. ADALAT [Concomitant]
     Active Substance: NIFEDIPINE
  10. ASACOL [Concomitant]
     Active Substance: MESALAMINE
  11. ACTEMRA [Suspect]
     Active Substance: TOCILIZUMAB
     Indication: RHEUMATOID ARTHRITIS
     Route: 042
     Dates: start: 20131211
  12. IRBESARTAN. [Concomitant]
     Active Substance: IRBESARTAN
  13. METFORMIN [Concomitant]
     Active Substance: METFORMIN HYDROCHLORIDE
  14. EURO-FER [Concomitant]
  15. ACTEMRA [Suspect]
     Active Substance: TOCILIZUMAB
     Route: 042
     Dates: start: 20140108, end: 20150211
  16. PANTOPRAZOLE [Concomitant]
     Active Substance: PANTOPRAZOLE
  17. SERTRALINE [Concomitant]
     Active Substance: SERTRALINE HYDROCHLORIDE
     Route: 065
     Dates: end: 201402
  18. TYLENOL WITH CODEINE [Concomitant]
     Active Substance: ACETAMINOPHEN\CODEINE PHOSPHATE
  19. BUPROPION. [Concomitant]
     Active Substance: BUPROPION
     Route: 065
     Dates: end: 20140205
  20. SPIRIVA [Concomitant]
     Active Substance: TIOTROPIUM BROMIDE MONOHYDRATE
  21. PREMARIN [Concomitant]
     Active Substance: ESTROGENS, CONJUGATED
  22. TRAZODONE [Concomitant]
     Active Substance: TRAZODONE HYDROCHLORIDE
  23. SOLU-MEDROL [Concomitant]
     Active Substance: METHYLPREDNISOLONE SODIUM SUCCINATE
     Route: 042
  24. ARIPIPRAZOLE. [Concomitant]
     Active Substance: ARIPIPRAZOLE
  25. KETOROLAC [Concomitant]
     Active Substance: KETOROLAC\KETOROLAC TROMETHAMINE
  26. TYLENOL [Concomitant]
     Active Substance: ACETAMINOPHEN
  27. ARTHROTEC [Concomitant]
     Active Substance: DICLOFENAC SODIUM\MISOPROSTOL
  28. CODEIN [Concomitant]
     Active Substance: CODEINE
     Indication: COUGH
  29. RITUXAN [Suspect]
     Active Substance: RITUXIMAB
     Indication: RHEUMATOID ARTHRITIS
     Dosage: FREQUENCY: DAY 1+15
     Route: 042
     Dates: start: 20150319
  30. ADVAIR HFA [Concomitant]
     Active Substance: FLUTICASONE PROPIONATE\SALMETEROL XINAFOATE
  31. LYRICA [Concomitant]
     Active Substance: PREGABALIN
  32. NICOTINE. [Concomitant]
     Active Substance: NICOTINE
  33. OLANZAPINE. [Concomitant]
     Active Substance: OLANZAPINE
  34. ROSUVASTATIN. [Concomitant]
     Active Substance: ROSUVASTATIN

REACTIONS (27)
  - Depressive symptom [Not Recovered/Not Resolved]
  - Arthralgia [Unknown]
  - Blood pressure increased [Unknown]
  - Joint stiffness [Not Recovered/Not Resolved]
  - Blood pressure increased [Unknown]
  - Vision blurred [Recovering/Resolving]
  - Glaucoma [Not Recovered/Not Resolved]
  - Dizziness [Recovering/Resolving]
  - Influenza [Not Recovered/Not Resolved]
  - Dark circles under eyes [Unknown]
  - Diarrhoea [Not Recovered/Not Resolved]
  - Infusion related reaction [Recovered/Resolved]
  - Palmar erythema [Not Recovered/Not Resolved]
  - Drug ineffective [Unknown]
  - Musculoskeletal discomfort [Not Recovered/Not Resolved]
  - Gait disturbance [Unknown]
  - Cystitis [Unknown]
  - Headache [Unknown]
  - Insomnia [Unknown]
  - Cough [Not Recovered/Not Resolved]
  - Infusion related reaction [Unknown]
  - Oxygen saturation decreased [Unknown]
  - Blood pressure systolic increased [Unknown]
  - Anxiety [Not Recovered/Not Resolved]
  - Insomnia [Not Recovered/Not Resolved]
  - Fibromyalgia [Not Recovered/Not Resolved]
  - Balance disorder [Not Recovered/Not Resolved]

NARRATIVE: CASE EVENT DATE: 2014
